FAERS Safety Report 13408438 (Version 1)
Quarter: 2017Q2

REPORT INFORMATION
  Report Type: Spontaneous
  Country: US (occurrence: US)
  Receive Date: 20170405
  Receipt Date: 20170405
  Transmission Date: 20170830
  Serious: No
  Sender: FDA-Public Use
  Company Number: None

PATIENT
  Age: 69 Year
  Sex: Female
  Weight: 53 kg

DRUGS (3)
  1. MACROZIT [Suspect]
     Active Substance: AZITHROMYCIN
     Indication: PYREXIA
     Dosage: ?          QUANTITY:4 TABLET(S);?
     Route: 048
     Dates: start: 20170320, end: 20170323
  2. GENERAL MULTI VITAMIN FOR WOMEN [Concomitant]
  3. MACROZIT [Suspect]
     Active Substance: AZITHROMYCIN
     Indication: COUGH
     Dosage: ?          QUANTITY:4 TABLET(S);?
     Route: 048
     Dates: start: 20170320, end: 20170323

REACTIONS (7)
  - Presyncope [None]
  - Loss of consciousness [None]
  - Nausea [None]
  - Heart rate increased [None]
  - Asthenia [None]
  - Fall [None]
  - Tooth fracture [None]

NARRATIVE: CASE EVENT DATE: 20170320
